FAERS Safety Report 20227992 (Version 3)
Quarter: 2022Q1

REPORT INFORMATION
  Report Type: Report from Study
  Country: MX (occurrence: MX)
  Receive Date: 20211224
  Receipt Date: 20220206
  Transmission Date: 20220423
  Serious: Yes (Other)
  Sender: FDA-Public Use
  Company Number: MX-NOVARTISPH-NVSC2021MX294453

PATIENT
  Age: 71 Year
  Sex: Female
  Weight: 140 kg

DRUGS (4)
  1. HYDROCHLOROTHIAZIDE\VALSARTAN [Suspect]
     Active Substance: HYDROCHLOROTHIAZIDE\VALSARTAN
     Indication: Cardiac disorder
     Dosage: 1 DF, (SINCE ABOUT 10 YEARS)
     Route: 048
     Dates: start: 2012
  2. HYDROCHLOROTHIAZIDE\VALSARTAN [Suspect]
     Active Substance: HYDROCHLOROTHIAZIDE\VALSARTAN
     Indication: Hypertension
     Dosage: 2 DOSAGE FORM, QD
     Route: 048
  3. HYDROCHLOROTHIAZIDE\VALSARTAN [Suspect]
     Active Substance: HYDROCHLOROTHIAZIDE\VALSARTAN
     Dosage: 1 DOSAGE FORM, BID (1 IN THE MORNING AND 1 AT NIGHT)
     Route: 048
  4. HYDROCHLOROTHIAZIDE\VALSARTAN [Suspect]
     Active Substance: HYDROCHLOROTHIAZIDE\VALSARTAN
     Dosage: UNK UNK, QD (80/12.5MG) (10 YEARS AGO (EXACT DATE UNKNOWN)
     Route: 048

REACTIONS (7)
  - Dyspnoea [Unknown]
  - Thyroid disorder [Not Recovered/Not Resolved]
  - Heart rate increased [Not Recovered/Not Resolved]
  - Chest discomfort [Unknown]
  - Emotional disorder [Unknown]
  - Nervousness [Unknown]
  - Inappropriate schedule of product administration [Unknown]

NARRATIVE: CASE EVENT DATE: 20210901
